FAERS Safety Report 6549416-8 (Version None)
Quarter: 2010Q1

REPORT INFORMATION
  Report Type: 
  Country: None (occurrence: None)
  Receive Date: 20100125
  Receipt Date: 20100115
  Transmission Date: 20100710
  Serious: Yes (Death, Hospitalization)
  Sender: FDA-Public Use
  Company Number: CN-ELI_LILLY_AND_COMPANY-CN201001002590

PATIENT
  Age: 68 Year
  Sex: Male
  Weight: 65 kg

DRUGS (12)
  1. PRASUGREL HYDROCHLORIDE [Suspect]
     Dosage: 30 MG, LOADING DOSE
  2. PRASUGREL HYDROCHLORIDE [Suspect]
     Dosage: 7.5 MG, MAINTENANCE DOSE
     Route: 048
     Dates: start: 20100110, end: 20100111
  3. PRASUGREL HYDROCHLORIDE [Suspect]
     Dosage: 7.5 MG, MAINTENANCE DOSE
     Route: 048
     Dates: start: 20100112, end: 20100113
  4. ASPIRIN [Concomitant]
     Dates: start: 20100110, end: 20100111
  5. OMEPRAZOLE SODIUM [Concomitant]
     Dates: start: 20100110, end: 20100111
  6. HEPARIN SODIUM [Concomitant]
     Dates: start: 20100111, end: 20100112
  7. FUROSEMIDE [Concomitant]
     Dates: start: 20100112
  8. MANNITOL [Concomitant]
  9. ATORVASTATIN CALCIUM [Concomitant]
  10. ATROPINE [Concomitant]
  11. ADRENALINE [Concomitant]
  12. PERINDOPRIL [Concomitant]

REACTIONS (2)
  - CEREBRAL ARTERY EMBOLISM [None]
  - UPPER GASTROINTESTINAL HAEMORRHAGE [None]
